FAERS Safety Report 9281489 (Version 2)
Quarter: 2013Q2

REPORT INFORMATION
  Report Type: Report from Study
  Country: DK (occurrence: DK)
  Receive Date: 20130509
  Receipt Date: 20130613
  Transmission Date: 20140414
  Serious: Yes (Hospitalization)
  Sender: FDA-Public Use
  Company Number: DK-ABBOTT-13P-044-1084225-00

PATIENT
  Age: 74 Year
  Sex: Female
  Weight: 74.3 kg

DRUGS (12)
  1. HUMIRA [Suspect]
     Indication: RHEUMATOID ARTHRITIS
     Route: 058
     Dates: start: 20130118, end: 20130329
  2. METHOTREXATE [Concomitant]
     Indication: RHEUMATOID ARTHRITIS
     Dates: start: 1992
  3. GLUCOSAMIN [Concomitant]
     Indication: PRODUCT USED FOR UNKNOWN INDICATION
  4. FERRODURETTER [Concomitant]
     Indication: PRODUCT USED FOR UNKNOWN INDICATION
  5. ELTROXIN [Concomitant]
     Indication: PRODUCT USED FOR UNKNOWN INDICATION
  6. CALCIUM [Concomitant]
     Indication: PRODUCT USED FOR UNKNOWN INDICATION
  7. FOLIMET [Concomitant]
     Indication: PRODUCT USED FOR UNKNOWN INDICATION
  8. ALENDRONAT [Concomitant]
     Indication: PRODUCT USED FOR UNKNOWN INDICATION
  9. CITALOPRAM [Concomitant]
     Indication: PRODUCT USED FOR UNKNOWN INDICATION
  10. IMOZOP [Concomitant]
     Indication: PRODUCT USED FOR UNKNOWN INDICATION
  11. FISH OIL [Concomitant]
     Indication: PRODUCT USED FOR UNKNOWN INDICATION
  12. GERIMAX [Concomitant]
     Indication: PRODUCT USED FOR UNKNOWN INDICATION

REACTIONS (3)
  - Cough [Unknown]
  - Dyspnoea [Unknown]
  - Alveolitis allergic [Recovering/Resolving]
